FAERS Safety Report 7163401-7 (Version None)
Quarter: 2010Q4

REPORT INFORMATION
  Report Type: 
  Country: None (occurrence: None)
  Receive Date: 20101210
  Receipt Date: 20101210
  Transmission Date: 20110411
  Serious: Yes (Life-Threatening, Hospitalization, Disabling, Other)
  Sender: FDA-Public Use
  Company Number: None

PATIENT
  Age: 45 Year
  Sex: Female
  Weight: 90.7194 kg

DRUGS (1)
  1. LYRICA [Suspect]
     Indication: FIBROMYALGIA
     Dosage: 150MIL 2 TIMES A DAY PO
     Route: 048
     Dates: start: 20100601, end: 20100621

REACTIONS (2)
  - MULTIPLE INJURIES [None]
  - SUICIDE ATTEMPT [None]
